FAERS Safety Report 6216188-6 (Version None)
Quarter: 2009Q2

REPORT INFORMATION
  Report Type: 
  Country: None (occurrence: None)
  Receive Date: 20090605
  Receipt Date: 20090529
  Transmission Date: 20091009
  Serious: Yes (Other)
  Sender: FDA-Public Use
  Company Number: B0577188A

PATIENT
  Age: 55 Year
  Sex: Female
  Weight: 90 kg

DRUGS (4)
  1. ALLI [Suspect]
     Dosage: 1CAP TWICE PER DAY
     Route: 048
  2. PRITOR [Concomitant]
     Route: 065
  3. ALDACTONE [Concomitant]
     Route: 065
  4. SIMVASTATIN [Concomitant]
     Route: 065

REACTIONS (2)
  - CHILLS [None]
  - DIARRHOEA HAEMORRHAGIC [None]
